FAERS Safety Report 5241278-4 (Version None)
Quarter: 2007Q1

REPORT INFORMATION
  Report Type: 
  Country: None (occurrence: None)
  Receive Date: 20070220
  Receipt Date: 20070207
  Transmission Date: 20070707
  Serious: Yes (Other)
  Sender: FDA-Public Use
  Company Number: CA-JNJFOC-20070202716

PATIENT
  Sex: Female

DRUGS (2)
  1. TYLENOL (CAPLET) [Suspect]
  2. TYLENOL (CAPLET) [Suspect]
     Indication: DRUG USE FOR UNKNOWN INDICATION
     Dosage: UNKNOWN DOSAGE GIVEN 3 TIMES ON 02-FEB-2007 AND UNKNOWN DOSAGE GIVEN ONE TIME ON 03-FEB-2007.

REACTIONS (2)
  - HALLUCINATION [None]
  - PSYCHOMOTOR HYPERACTIVITY [None]
